FAERS Safety Report 25968275 (Version 1)
Quarter: 2025Q4

REPORT INFORMATION
  Report Type: Spontaneous
  Country: US (occurrence: US)
  Receive Date: 20251028
  Receipt Date: 20251028
  Transmission Date: 20260118
  Serious: No
  Sender: SUNOVION
  Company Number: US-SMPA-2025SPA012954

PATIENT
  Sex: Male

DRUGS (1)
  1. ORGOVYX [Suspect]
     Active Substance: RELUGOLIX
     Indication: Product used for unknown indication
     Dosage: UNK..3 1/2 MONTHS
     Route: 048

REACTIONS (9)
  - Anorgasmia [Unknown]
  - Chills [Unknown]
  - Memory impairment [Unknown]
  - Testicular pain [Unknown]
  - Alopecia [Unknown]
  - Depression [Unknown]
  - Haemoglobin decreased [Not Recovered/Not Resolved]
  - Insomnia [Unknown]
  - Libido decreased [Unknown]
